FAERS Safety Report 13008051 (Version 1)
Quarter: 2016Q4

REPORT INFORMATION
  Report Type: Spontaneous
  Country: CN (occurrence: CN)
  Receive Date: 20161208
  Receipt Date: 20161208
  Transmission Date: 20170207
  Serious: Yes (Hospitalization)
  Sender: FDA-Public Use
  Company Number: CN-ROCHE-1863788

PATIENT
  Age: 86 Year
  Sex: Male
  Weight: 45 kg

DRUGS (5)
  1. LEVOFLOXACIN HYDROCHLORIDE [Suspect]
     Active Substance: LEVOFLOXACIN HYDROCHLORIDE
     Indication: LUNG INFECTION
     Dosage: WITH SODIUM CHLORIDE
     Route: 041
     Dates: start: 20160815, end: 20160818
  2. ROCEPHIN [Suspect]
     Active Substance: CEFTRIAXONE SODIUM
     Indication: LUNG INFECTION
     Route: 041
     Dates: start: 20160818
  3. MOXIFLOXACIN HYDROCHLORIDE. [Suspect]
     Active Substance: MOXIFLOXACIN HYDROCHLORIDE
     Indication: LUNG INFECTION
     Dosage: WITH SODIUM CHLORIDE
     Route: 041
     Dates: start: 20160818
  4. SODIUM CHLORIDE. [Suspect]
     Active Substance: SODIUM CHLORIDE
     Dosage: WITH LEVOFLOXACIN HYDROCHLORIDE
     Route: 041
     Dates: start: 20160815, end: 20160818
  5. SODIUM CHLORIDE. [Suspect]
     Active Substance: SODIUM CHLORIDE
     Indication: LUNG INFECTION
     Dosage: WITH MOXIFLOXACIN HYDROCHLORIDE
     Route: 041
     Dates: start: 20160818

REACTIONS (1)
  - Pemphigus [Not Recovered/Not Resolved]

NARRATIVE: CASE EVENT DATE: 20160819
